FAERS Safety Report 7558528-1 (Version None)
Quarter: 2011Q2

REPORT INFORMATION
  Report Type: 
  Country: None (occurrence: None)
  Receive Date: 20110620
  Receipt Date: 20110606
  Transmission Date: 20111010
  Serious: Yes (Hospitalization)
  Sender: FDA-Public Use
  Company Number: FR-SANOFI-AVENTIS-2011SA036092

PATIENT
  Age: 52 Year
  Sex: Female

DRUGS (1)
  1. PLAQUENIL [Suspect]
     Route: 048
     Dates: start: 20080801

REACTIONS (3)
  - MITRAL VALVE INCOMPETENCE [None]
  - CONGESTIVE CARDIOMYOPATHY [None]
  - EJECTION FRACTION DECREASED [None]
